FAERS Safety Report 16089308 (Version 4)
Quarter: 2019Q2

REPORT INFORMATION
  Report Type: Spontaneous
  Country: JP (occurrence: JP)
  Receive Date: 20190319
  Receipt Date: 20190603
  Transmission Date: 20190711
  Serious: Yes (Hospitalization)
  Sender: FDA-Public Use
  Company Number: JP-JNJFOC-20190323721

PATIENT
  Age: 69 Year
  Sex: Female

DRUGS (2)
  1. PEROSPIRONE HYDROCHLORIDE [Suspect]
     Active Substance: PEROSPIRONE HYDROCHLORIDE
     Indication: SCHIZOPHRENIA
     Route: 048
  2. DUROTEP MT [Suspect]
     Active Substance: FENTANYL
     Indication: CANCER PAIN
     Route: 062
     Dates: end: 20190317

REACTIONS (1)
  - Schizophrenia [Recovering/Resolving]
